FAERS Safety Report 9943531 (Version 2)
Quarter: 2014Q1

REPORT INFORMATION
  Report Type: Report from Study
  Country: US (occurrence: US)
  Receive Date: 20140303
  Receipt Date: 20140303
  Transmission Date: 20141002
  Serious: Yes (Hospitalization)
  Sender: FDA-Public Use
  Company Number: US-ABBVIE-12P-163-1023308-00

PATIENT
  Age: 57 Year
  Sex: Female
  Weight: 59.93 kg

DRUGS (16)
  1. HUMIRA PEN [Suspect]
     Indication: CROHN^S DISEASE
     Dates: start: 20120703, end: 201212
  2. HUMIRA PEN [Suspect]
     Dates: start: 201208
  3. SEROQUEL [Concomitant]
     Indication: POST-TRAUMATIC STRESS DISORDER
  4. SEROQUEL [Concomitant]
     Indication: BIPOLAR I DISORDER
  5. ZOLOFT [Concomitant]
     Indication: POST-TRAUMATIC STRESS DISORDER
  6. ZOLOFT [Concomitant]
     Indication: BIPOLAR I DISORDER
  7. SINGULAIR [Concomitant]
     Indication: HYPERSENSITIVITY
  8. PROTONIX [Concomitant]
     Indication: GASTROOESOPHAGEAL REFLUX DISEASE
  9. OXYCONTIN [Concomitant]
     Indication: PAIN
  10. FENTANYL [Concomitant]
     Indication: PAIN
     Dosage: PATCH
  11. ADVAIR [Concomitant]
     Indication: ASTHMA
  12. ADVAIR [Concomitant]
     Indication: CHRONIC OBSTRUCTIVE PULMONARY DISEASE
  13. COMBIVENT [Concomitant]
     Indication: ASTHMA
  14. COMBIVENT [Concomitant]
     Indication: CHRONIC OBSTRUCTIVE PULMONARY DISEASE
  15. CREON [Concomitant]
     Indication: CROHN^S DISEASE
     Dates: start: 201208
  16. CREON [Concomitant]
     Indication: PANCREATITIS CHRONIC

REACTIONS (4)
  - Lung neoplasm malignant [Unknown]
  - Injection site pain [Not Recovered/Not Resolved]
  - Drug ineffective [Unknown]
  - Injection site pain [Unknown]
